FAERS Safety Report 13075877 (Version 2)
Quarter: 2017Q1

REPORT INFORMATION
  Report Type: Spontaneous
  Country: US (occurrence: US)
  Receive Date: 20161230
  Receipt Date: 20170309
  Transmission Date: 20170428
  Serious: Yes (Hospitalization, Other)
  Sender: FDA-Public Use
  Company Number: US-009507513-1612USA013543

PATIENT
  Age: 64 Year
  Sex: Male

DRUGS (4)
  1. TICE BCG [Suspect]
     Active Substance: BACILLUS CALMETTE-GUERIN SUBSTRAIN TICE LIVE ANTIGEN
     Indication: TRANSITIONAL CELL CARCINOMA RECURRENT
     Dosage: UNK
     Route: 043
  2. CALCITRIOL. [Suspect]
     Active Substance: CALCITRIOL
     Indication: HYPOPARATHYROIDISM
     Dosage: 1 MICROGRAM, QD
  3. CALCIUM CITRATE (+) VITAMIN D (UNSPECIFIED) [Suspect]
     Active Substance: CALCIUM CITRATE\VITAMIN D
     Dosage: 945-600 MG-UNITS/DAY
  4. ALUMINUM HISTIDINATE (+) MAGNESIUM HYDROXIDE [Concomitant]
     Active Substance: ALUMINUM HYDROXIDE\MAGNESIUM HYDROXIDE
     Indication: DYSPEPSIA
     Dosage: UNK, PRN

REACTIONS (6)
  - Hepatic enzyme increased [None]
  - Granuloma [Unknown]
  - Hypercalcaemia [Recovered/Resolved]
  - Acute kidney injury [Recovered/Resolved]
  - Sepsis syndrome [Unknown]
  - Cystitis [Unknown]
